FAERS Safety Report 18196196 (Version 1)
Quarter: 2020Q3

REPORT INFORMATION
  Report Type: Spontaneous
  Country: CA (occurrence: CA)
  Receive Date: 20200825
  Receipt Date: 20200825
  Transmission Date: 20201103
  Serious: Yes (Other)
  Sender: FDA-Public Use
  Company Number: CA-PURDUE-USA-2020-0163437

PATIENT
  Age: 50 Year
  Sex: Male
  Weight: 126 kg

DRUGS (1)
  1. HYDROMORPHONE HCL (SIMILAR TO 19?892) [Suspect]
     Active Substance: HYDROMORPHONE HYDROCHLORIDE
     Indication: PRODUCT USED FOR UNKNOWN INDICATION
     Dosage: UNK
     Route: 065

REACTIONS (4)
  - Therapeutic product effect decreased [Unknown]
  - Product substitution issue [Unknown]
  - Abdominal discomfort [Unknown]
  - Fatigue [Unknown]
